FAERS Safety Report 20904618 (Version 1)
Quarter: 2022Q2

REPORT INFORMATION
  Report Type: Spontaneous
  Country: JP (occurrence: JP)
  Receive Date: 20220602
  Receipt Date: 20220602
  Transmission Date: 20220721
  Serious: Yes (Hospitalization)
  Sender: FDA-Public Use
  Company Number: JP-ASTELLAS-2022JP004768

PATIENT
  Age: 63 Year
  Sex: Male
  Weight: 101 kg

DRUGS (8)
  1. PADCEV [Suspect]
     Active Substance: ENFORTUMAB VEDOTIN-EJFV
     Indication: Malignant neoplasm of renal pelvis
     Dosage: 120 MG, THRICE EVERY 4 WEEKS
     Route: 041
     Dates: start: 20220316
  2. PADCEV [Suspect]
     Active Substance: ENFORTUMAB VEDOTIN-EJFV
     Indication: Ureteric cancer
  3. PADCEV [Suspect]
     Active Substance: ENFORTUMAB VEDOTIN-EJFV
     Indication: Bladder cancer
  4. SODIUM CHLORIDE [Concomitant]
     Active Substance: SODIUM CHLORIDE
     Indication: Product used for unknown indication
     Route: 065
  5. NORVASC [Concomitant]
     Active Substance: AMLODIPINE BESYLATE
     Indication: Hypertension
     Route: 048
  6. CANDESARTAN CILEXETIL [Concomitant]
     Active Substance: CANDESARTAN CILEXETIL
     Indication: Hypertension
     Route: 048
  7. OLOPATADINE HYDROCHLORIDE [Concomitant]
     Active Substance: OLOPATADINE HYDROCHLORIDE
     Indication: Rash
     Dosage: UNK UNK, UNKNOWN FREQ.
     Route: 065
     Dates: start: 20220322
  8. Nerisona universal [Concomitant]
     Indication: Rash
     Dosage: UNK UNK, UNKNOWN FREQ.
     Route: 065
     Dates: start: 20220322

REACTIONS (12)
  - Hepatic function abnormal [Not Recovered/Not Resolved]
  - Hyperglycaemia [Recovered/Resolved]
  - Pruritus [Recovered/Resolved]
  - Erythema [Recovered/Resolved]
  - Decreased appetite [Not Recovered/Not Resolved]
  - Rash [Recovered/Resolved]
  - Aspartate aminotransferase increased [Recovered/Resolved]
  - Alanine aminotransferase increased [Recovered/Resolved]
  - White blood cell count decreased [Recovered/Resolved]
  - Haemoglobin decreased [Recovered/Resolved]
  - Dysgeusia [Recovered/Resolved]
  - Alopecia [Not Recovered/Not Resolved]

NARRATIVE: CASE EVENT DATE: 20220322
